FAERS Safety Report 21366765 (Version 1)
Quarter: 2022Q3

REPORT INFORMATION
  Report Type: Spontaneous
  Country: US (occurrence: US)
  Receive Date: 20220923
  Receipt Date: 20220923
  Transmission Date: 20221027
  Serious: No
  Sender: FDA-Public Use
  Company Number: US-SA-SAC20220919000198

PATIENT
  Age: 65 Year
  Sex: Male
  Weight: 68 kg

DRUGS (6)
  1. DUPIXENT [Suspect]
     Active Substance: DUPILUMAB
     Indication: Neurodermatitis
     Dosage: 300MG, QOW
     Route: 058
     Dates: start: 20220823
  2. AMLODIPINE [Concomitant]
     Active Substance: AMLODIPINE BESYLATE
  3. CRESTOR [Concomitant]
     Active Substance: ROSUVASTATIN CALCIUM
  4. ZYRTEC [Concomitant]
     Active Substance: CETIRIZINE HYDROCHLORIDE
  5. VARENICLINE TARTRATE [Concomitant]
     Active Substance: VARENICLINE TARTRATE
  6. PFIZER-BIONTECH COVID-19 VACCINE [Concomitant]
     Active Substance: TOZINAMERAN

REACTIONS (6)
  - Injection site rash [Not Recovered/Not Resolved]
  - Dry skin [Unknown]
  - Skin exfoliation [Unknown]
  - Injection site reaction [Unknown]
  - Rash [Recovered/Resolved]
  - Product use in unapproved indication [Unknown]

NARRATIVE: CASE EVENT DATE: 20220801
